FAERS Safety Report 23961942 (Version 1)
Quarter: 2024Q2

REPORT INFORMATION
  Report Type: Spontaneous
  Country: US (occurrence: US)
  Receive Date: 20240611
  Receipt Date: 20240611
  Transmission Date: 20240716
  Serious: Yes (Hospitalization)
  Sender: FDA-Public Use
  Company Number: US-SK LIFE SCIENCE, INC.-SKPVG-2024-001167

PATIENT

DRUGS (2)
  1. XCOPRI [Suspect]
     Active Substance: CENOBAMATE
     Indication: Product used for unknown indication
     Dosage: UNK
     Route: 065
  2. XCOPRI [Suspect]
     Active Substance: CENOBAMATE
     Dosage: 250 MILLIGRAM, QD

REACTIONS (4)
  - Hospitalisation [Recovered/Resolved]
  - Hospitalisation [Not Recovered/Not Resolved]
  - Off label use [Not Recovered/Not Resolved]
  - Gastrostomy [Not Recovered/Not Resolved]

NARRATIVE: CASE EVENT DATE: 20240529
